FAERS Safety Report 21377428 (Version 1)
Quarter: 2022Q3

REPORT INFORMATION
  Report Type: Spontaneous
  Country: US (occurrence: US)
  Receive Date: 20220926
  Receipt Date: 20220926
  Transmission Date: 20221027
  Serious: Yes (Hospitalization)
  Sender: FDA-Public Use
  Company Number: US-ALLERGAN-2231266US

PATIENT
  Sex: Female

DRUGS (1)
  1. QULIPTA [Suspect]
     Active Substance: ATOGEPANT
     Indication: Product used for unknown indication
     Dosage: UNK

REACTIONS (12)
  - Hospitalisation [Unknown]
  - Craniocerebral injury [Unknown]
  - Road traffic accident [Unknown]
  - Trigeminal neuralgia [Unknown]
  - Nerve compression [Unknown]
  - Cluster headache [Unknown]
  - COVID-19 [Unknown]
  - Photophobia [Unknown]
  - Hyperacusis [Unknown]
  - Vomiting [Unknown]
  - Migraine [Unknown]
  - Nausea [Unknown]
